FAERS Safety Report 12788380 (Version 1)
Quarter: 2016Q3

REPORT INFORMATION
  Report Type: Not Available
  Country: None (occurrence: US)
  Receive Date: 20160928
  Receipt Date: 20160928
  Transmission Date: 20161109
  Serious: Yes (Life-Threatening, Other)
  Sender: FDA-Public Use
  Company Number: US-AKORN-39348

PATIENT
  Sex: Female

DRUGS (1)
  1. SUBLIMAZE [Suspect]
     Active Substance: FENTANYL CITRATE

REACTIONS (3)
  - Irritability [None]
  - Anger [None]
  - Overdose [None]
